FAERS Safety Report 13111336 (Version 1)
Quarter: 2017Q1

REPORT INFORMATION
  Report Type: Spontaneous
  Country: US (occurrence: US)
  Receive Date: 20170112
  Receipt Date: 20170112
  Transmission Date: 20170428
  Serious: No
  Sender: FDA-Public Use
  Company Number: US-009507513-1612USA010847

PATIENT
  Age: 67 Year
  Sex: Male

DRUGS (4)
  1. PRINIVIL [Suspect]
     Active Substance: LISINOPRIL
     Route: 048
  2. ZOLOFT [Concomitant]
     Active Substance: SERTRALINE HYDROCHLORIDE
  3. SUTENT [Suspect]
     Active Substance: SUNITINIB MALATE
     Dosage: 50 MG DAILY FOR 2 WEEKS ON/1 WEEK OFF
     Dates: start: 20161102
  4. VITAMINS (UNSPECIFIED) [Suspect]
     Active Substance: VITAMINS

REACTIONS (3)
  - Diarrhoea [Unknown]
  - Regurgitation [Unknown]
  - Nausea [Unknown]

NARRATIVE: CASE EVENT DATE: 20161201
